FAERS Safety Report 20479707 (Version 4)
Quarter: 2022Q2

REPORT INFORMATION
  Report Type: Report from Study
  Country: US (occurrence: US)
  Receive Date: 20220216
  Receipt Date: 20220414
  Transmission Date: 20220721
  Serious: Yes (Hospitalization, Other)
  Sender: FDA-Public Use
  Company Number: US-HBP-2022US024992

PATIENT
  Sex: Male

DRUGS (1)
  1. VALCHLOR [Suspect]
     Active Substance: MECHLORETHAMINE
     Indication: Cutaneous T-cell lymphoma
     Dosage: THIN FILM, QD
     Route: 061
     Dates: start: 20211124

REACTIONS (11)
  - Application site ulcer [Recovering/Resolving]
  - Application site pain [Recovering/Resolving]
  - Application site infection [Unknown]
  - Application site discharge [Recovering/Resolving]
  - Skin exfoliation [Unknown]
  - Skin discolouration [Unknown]
  - Blister rupture [Unknown]
  - Dry skin [Unknown]
  - Application site erythema [Unknown]
  - Application site vesicles [Unknown]
  - Erythema [Unknown]
